FAERS Safety Report 4480943-3 (Version None)
Quarter: 2004Q4

REPORT INFORMATION
  Report Type: 
  Country: None (occurrence: None)
  Receive Date: 20041021
  Receipt Date: 20041012
  Transmission Date: 20050328
  Serious: Yes (Other)
  Sender: FDA-Public Use
  Company Number: 200413869FR

PATIENT
  Age: 80 Year
  Sex: Male

DRUGS (12)
  1. KETEK [Suspect]
     Indication: BRONCHITIS CHRONIC
     Route: 048
     Dates: start: 20041001
  2. KETEK [Suspect]
     Indication: SUPERINFECTION
     Route: 048
     Dates: start: 20041001
  3. LANTUS [Concomitant]
     Indication: DIABETES MELLITUS
  4. COTAREG [Concomitant]
     Indication: HYPERTENSION
     Route: 048
  5. AMLOR [Concomitant]
     Route: 048
  6. GLIBENESE [Concomitant]
     Indication: DIABETES MELLITUS
     Route: 048
  7. LIPANTHYL ^THISSEN^ [Concomitant]
     Route: 048
  8. FONZYLANE [Concomitant]
     Route: 048
     Dates: start: 20041001
  9. STABLON [Concomitant]
     Route: 048
  10. PERMIXON [Concomitant]
     Route: 048
  11. KARDEGIC [Concomitant]
     Route: 048
  12. VASTAREL [Concomitant]
     Route: 048

REACTIONS (8)
  - BLOOD GLUCOSE ABNORMAL [None]
  - BLOOD PRESSURE INADEQUATELY CONTROLLED [None]
  - BLOOD PRESSURE SYSTOLIC INCREASED [None]
  - HEADACHE [None]
  - HYPOTENSION [None]
  - NAUSEA [None]
  - PULSE ABNORMAL [None]
  - SYNCOPE [None]
